FAERS Safety Report 9782623 (Version 3)
Quarter: 2014Q1

REPORT INFORMATION
  Report Type: Report from Study
  Country: AU (occurrence: AU)
  Receive Date: 20131226
  Receipt Date: 20140314
  Transmission Date: 20141002
  Serious: Yes (Other)
  Sender: FDA-Public Use
  Company Number: PHHY2012AU129461

PATIENT
  Age: 53 Year
  Sex: Female
  Weight: 74.5 kg

DRUGS (1)
  1. FEMARA [Suspect]
     Indication: BREAST CANCER
     Dosage: 2.5 MG, DAILY
     Route: 048
     Dates: start: 201105

REACTIONS (2)
  - Osteoporosis [Recovering/Resolving]
  - Hyperparathyroidism [Recovering/Resolving]
